FAERS Safety Report 7325762-5 (Version None)
Quarter: 2011Q1

REPORT INFORMATION
  Report Type: 
  Country: None (occurrence: None)
  Receive Date: 20110302
  Receipt Date: 20110202
  Transmission Date: 20110831
  Serious: No
  Sender: FDA-Public Use
  Company Number: US-BAYER-2011-014571

PATIENT
  Sex: Female
  Weight: 67 kg

DRUGS (3)
  1. MIRAPEX [Concomitant]
  2. ALEVE (CAPLET) [Suspect]
     Indication: ARTHRITIS
     Dosage: DAILY
     Route: 048
     Dates: start: 20110131
  3. AMBIEN [Concomitant]

REACTIONS (1)
  - INSOMNIA [None]
